FAERS Safety Report 16008725 (Version 11)
Quarter: 2019Q4

REPORT INFORMATION
  Report Type: Spontaneous
  Country: BR (occurrence: BR)
  Receive Date: 20190225
  Receipt Date: 20191203
  Transmission Date: 20200122
  Serious: Yes (Hospitalization, Other)
  Sender: FDA-Public Use
  Company Number: BR-GLAXOSMITHKLINE-BR2019GSK031436

PATIENT
  Age: 28 Year
  Sex: Male
  Weight: 83 kg

DRUGS (6)
  1. AEROLIN [Concomitant]
     Active Substance: ALBUTEROL
     Indication: PRODUCT USED FOR UNKNOWN INDICATION
     Dosage: UNK
  2. RELVAR ELLIPTA [Concomitant]
     Active Substance: FLUTICASONE FUROATE\VILANTEROL TRIFENATATE
     Indication: PRODUCT USED FOR UNKNOWN INDICATION
     Dosage: UNK
  3. SYMBICORT [Concomitant]
     Active Substance: BUDESONIDE\FORMOTEROL FUMARATE DIHYDRATE
     Indication: PRODUCT USED FOR UNKNOWN INDICATION
     Dosage: UNK
  4. NUCALA [Suspect]
     Active Substance: MEPOLIZUMAB
     Indication: ASTHMA
     Dosage: 100 MG, UNK
     Dates: start: 20190131
  5. PREDNISONE. [Concomitant]
     Active Substance: PREDNISONE
     Indication: PRODUCT USED FOR UNKNOWN INDICATION
     Dosage: 20 MG, QD
  6. SINGULAIR [Concomitant]
     Active Substance: MONTELUKAST SODIUM
     Indication: PRODUCT USED FOR UNKNOWN INDICATION
     Dosage: UNK

REACTIONS (22)
  - Feeling abnormal [Unknown]
  - Rash [Unknown]
  - Sinusitis [Unknown]
  - Pneumonia [Unknown]
  - Asthma [Unknown]
  - Nausea [Unknown]
  - Myalgia [Unknown]
  - Cough [Unknown]
  - Secretion discharge [Unknown]
  - Pyrexia [Unknown]
  - Respiratory disorder [Unknown]
  - Polypectomy [Unknown]
  - Product dose omission [Unknown]
  - Dyspnoea [Unknown]
  - Sleep disorder [Unknown]
  - Rhinorrhoea [Unknown]
  - Hypersensitivity [Unknown]
  - Condition aggravated [Not Recovered/Not Resolved]
  - Asthmatic crisis [Unknown]
  - Arthralgia [Unknown]
  - Headache [Unknown]
  - Odynophagia [Unknown]

NARRATIVE: CASE EVENT DATE: 201902
